FAERS Safety Report 6139232-3 (Version None)
Quarter: 2009Q2

REPORT INFORMATION
  Report Type: 
  Country: None (occurrence: None)
  Receive Date: 20090401
  Receipt Date: 20090323
  Transmission Date: 20091009
  Serious: Yes (Hospitalization)
  Sender: FDA-Public Use
  Company Number: US-BIOGENIDEC-2008BI031649

PATIENT
  Age: 51 Year
  Sex: Female
  Weight: 140 kg

DRUGS (12)
  1. AVONEX [Suspect]
     Indication: MULTIPLE SCLEROSIS
     Route: 030
     Dates: start: 20071001
  2. INSULIN [Concomitant]
     Indication: DRUG USE FOR UNKNOWN INDICATION
  3. STEROIDS (NOS) [Concomitant]
     Indication: DRUG USE FOR UNKNOWN INDICATION
  4. NOVOLOG [Concomitant]
     Indication: DRUG USE FOR UNKNOWN INDICATION
  5. ALBUTEROL [Concomitant]
     Indication: DRUG USE FOR UNKNOWN INDICATION
  6. HYDROCHLOROTHIAZIDE [Concomitant]
     Indication: DRUG USE FOR UNKNOWN INDICATION
  7. METFORMIN [Concomitant]
     Indication: DRUG USE FOR UNKNOWN INDICATION
  8. GLIPIZIDE [Concomitant]
     Indication: DRUG USE FOR UNKNOWN INDICATION
  9. LISINOPRIL [Concomitant]
     Indication: DRUG USE FOR UNKNOWN INDICATION
  10. PROTONIX [Concomitant]
     Indication: DRUG USE FOR UNKNOWN INDICATION
  11. ADVAIR DISKUS 100/50 [Concomitant]
     Indication: DRUG USE FOR UNKNOWN INDICATION
  12. ZANAFLEX [Concomitant]
     Indication: DRUG USE FOR UNKNOWN INDICATION

REACTIONS (8)
  - ABDOMINAL PAIN [None]
  - ARTHRITIS [None]
  - BLOOD GLUCOSE INCREASED [None]
  - CHEST PAIN [None]
  - HYPERTENSION [None]
  - INFUSION SITE SWELLING [None]
  - NUCLEAR MAGNETIC RESONANCE IMAGING ABNORMAL [None]
  - OSTEOARTHRITIS [None]
